FAERS Safety Report 4937137-4 (Version None)
Quarter: 2006Q1

REPORT INFORMATION
  Report Type: 
  Country: None (occurrence: None)
  Receive Date: 20060302
  Receipt Date: 20060221
  Transmission Date: 20060701
  Serious: Yes (Other)
  Sender: FDA-Public Use
  Company Number: 222358

PATIENT
  Age: 39 Year
  Sex: Male
  Weight: 71 kg

DRUGS (10)
  1. RITUXAN [Suspect]
     Indication: NON-HODGKIN'S LYMPHOMA
     Dosage: 760 MG, INTRAVENOUS
     Route: 042
     Dates: start: 20040918, end: 20041030
  2. DECADRON [Suspect]
     Indication: NON-HODGKIN'S LYMPHOMA
     Dosage: 40 MG, INTRAVENOUS
     Route: 042
     Dates: start: 20040919, end: 20041031
  3. ETOPOSIDE [Suspect]
     Indication: NON-HODGKIN'S LYMPHOMA
     Dosage: 175 MG, INTRAVENOUS
     Route: 042
     Dates: start: 20040919, end: 20041031
  4. PARAPLATIN [Suspect]
     Indication: NON-HODGKIN'S LYMPHOMA
     Dosage: 435 MG, INTRAVENOUS
     Route: 042
     Dates: start: 20040919, end: 20041031
  5. IRINOTECAN HCL [Suspect]
     Indication: NON-HODGKIN'S LYMPHOMA
     Dosage: 50 MG, INTRAVENOUS
     Route: 042
     Dates: start: 20040919, end: 20041031
  6. IBUPROFEN [Concomitant]
  7. POLARMIN (DEXCHLORPHENIRAMINE MALEATE) [Concomitant]
  8. ALLOPURINOL [Concomitant]
  9. SEROTONE (AZASETRON HYDROCHLORIDE) [Concomitant]
  10. HANGE-SHASHIN-TO (HERBAL, HOMEOPATHIC, + DIETARY SUPPLEMENTS) [Concomitant]

REACTIONS (4)
  - C-REACTIVE PROTEIN INCREASED [None]
  - HAEMOGLOBIN DECREASED [None]
  - NEUTROPENIA [None]
  - PYREXIA [None]
